FAERS Safety Report 14714939 (Version 1)
Quarter: 2018Q2

REPORT INFORMATION
  Report Type: Report from Study
  Country: US (occurrence: US)
  Receive Date: 20180404
  Receipt Date: 20180404
  Transmission Date: 20180711
  Serious: Yes (Life-Threatening, Hospitalization, Other)
  Sender: FDA-Public Use
  Company Number: US-TEVA-2018-US-876073

PATIENT
  Age: 33 Year
  Sex: Female
  Weight: 79 kg

DRUGS (22)
  1. CRANBERRY. [Concomitant]
     Active Substance: CRANBERRY
  2. CLARITIN [Concomitant]
     Active Substance: LORATADINE
  3. MEDROXYPROGESTERONE [Suspect]
     Active Substance: MEDROXYPROGESTERONE
     Indication: PRODUCT USED FOR UNKNOWN INDICATION
     Route: 065
  4. FK506E(MR4) [Suspect]
     Active Substance: TACROLIMUS
     Route: 048
     Dates: start: 20180217
  5. ALEMTUZUMAB [Suspect]
     Active Substance: ALEMTUZUMAB
     Route: 042
  6. LIPITOR [Concomitant]
     Active Substance: ATORVASTATIN CALCIUM
  7. BIOTIN [Concomitant]
     Active Substance: BIOTIN
  8. CICLOSPORIN [Suspect]
     Active Substance: CYCLOSPORINE
     Indication: PRODUCT USED FOR UNKNOWN INDICATION
     Route: 065
  9. HUMALOG [Concomitant]
     Active Substance: INSULIN LISPRO
  10. MAG-OX [Concomitant]
     Active Substance: MAGNESIUM OXIDE
  11. DESYREL [Concomitant]
     Active Substance: TRAZODONE HYDROCHLORIDE
  12. MYFORTIC [Suspect]
     Active Substance: MYCOPHENOLATE SODIUM
     Indication: PROPHYLAXIS AGAINST TRANSPLANT REJECTION
     Route: 048
     Dates: start: 20170503, end: 20180108
  13. FOSAMAX [Concomitant]
     Active Substance: ALENDRONATE SODIUM
  14. PREDNISONE. [Suspect]
     Active Substance: PREDNISONE
     Indication: PRODUCT USED FOR UNKNOWN INDICATION
     Route: 065
  15. FK506E(MR4) [Suspect]
     Active Substance: TACROLIMUS
     Indication: PROPHYLAXIS AGAINST TRANSPLANT REJECTION
     Route: 048
     Dates: start: 20170502
  16. MYFORTIC [Suspect]
     Active Substance: MYCOPHENOLATE SODIUM
     Route: 048
     Dates: start: 20180109, end: 20180111
  17. TYLENOL [Concomitant]
     Active Substance: ACETAMINOPHEN
  18. GLUCAGON DCI [Concomitant]
  19. COREG [Concomitant]
     Active Substance: CARVEDILOL
  20. FK506E(MR4) [Suspect]
     Active Substance: TACROLIMUS
     Route: 048
     Dates: start: 20180217
  21. COLACE [Concomitant]
     Active Substance: DOCUSATE SODIUM
  22. PROTONIX [Concomitant]
     Active Substance: PANTOPRAZOLE SODIUM

REACTIONS (5)
  - Tachycardia [Recovering/Resolving]
  - Pneumonia [Recovering/Resolving]
  - Hypotension [Recovering/Resolving]
  - Adenocarcinoma gastric [Recovering/Resolving]
  - Malnutrition [Recovering/Resolving]

NARRATIVE: CASE EVENT DATE: 20180106
